FAERS Safety Report 4809867-6 (Version None)
Quarter: 2005Q4

REPORT INFORMATION
  Report Type: 
  Country: None (occurrence: None)
  Receive Date: 20051024
  Receipt Date: 20051024
  Transmission Date: 20060501
  Serious: Yes (Hospitalization)
  Sender: FDA-Public Use
  Company Number: None

PATIENT
  Age: 55 Year
  Sex: Male

DRUGS (14)
  1. WARFARIN [Suspect]
     Dosage: 10MGX2, THEN 5MG X1
     Dates: start: 20050825, end: 20050828
  2. ACETAMINOPHEN [Concomitant]
  3. ALBUTEROL [Concomitant]
  4. BETAMETHASONE DIPROP. [Concomitant]
  5. BISACODYL [Concomitant]
  6. DIAZEPAM [Concomitant]
  7. HYDROCHLOROTHIAZIDE [Concomitant]
  8. IPRATROPIUM BR [Concomitant]
  9. MAGNESIUM HYDROXIDE TAB [Concomitant]
  10. METOCLOPRAMIDE HCL [Concomitant]
  11. METOPROLOL [Concomitant]
  12. MORPHINE [Concomitant]
  13. NICOTINE TRANSDERMAL PATCH [Concomitant]
  14. NYSTATIN [Concomitant]

REACTIONS (3)
  - HAEMATOCRIT DECREASED [None]
  - HAEMATOMA [None]
  - INCISION SITE HAEMORRHAGE [None]
